FAERS Safety Report 8202777-6 (Version None)
Quarter: 2012Q1

REPORT INFORMATION
  Report Type: 
  Country: None (occurrence: None)
  Receive Date: 20120312
  Receipt Date: 20120312
  Transmission Date: 20120608
  Serious: Yes (Other)
  Sender: FDA-Public Use
  Company Number: None

PATIENT
  Age: 70 Year
  Sex: Female
  Weight: 90.718 kg

DRUGS (2)
  1. SINGULAIR [Concomitant]
     Dosage: ONCE A DAY AT NIGHT
     Dates: start: 20110721, end: 20111121
  2. SINGULAIR [Suspect]
     Indication: ASTHMA
     Dosage: ONCE A DAY AT NIGHT
     Dates: start: 20110721, end: 20111121

REACTIONS (4)
  - ABNORMAL DREAMS [None]
  - INSOMNIA [None]
  - DISORIENTATION [None]
  - HALLUCINATION [None]
